FAERS Safety Report 19103593 (Version 1)
Quarter: 2021Q2

REPORT INFORMATION
  Report Type: Spontaneous
  Country: US (occurrence: US)
  Receive Date: 20210407
  Receipt Date: 20210407
  Transmission Date: 20210717
  Serious: No
  Sender: FDA-Public Use
  Company Number: US-PFIZER INC-2021201204

PATIENT
  Age: 54 Year
  Sex: Female
  Weight: 79.38 kg

DRUGS (2)
  1. PREMARIN [Suspect]
     Active Substance: ESTROGENS, CONJUGATED
     Indication: HOT FLUSH
     Dosage: 0.45 MG, DAILY (0.45MG SWALLOWED IT EVERY DAY)
     Route: 048
     Dates: start: 202006
  2. MEDROXYPROGESTERONE [Concomitant]
     Active Substance: MEDROXYPROGESTERONE
     Indication: HOT FLUSH
     Dosage: 2.5 MG, ALTERNATE DAY (2.5MG TABLET SWALLOW IT EVERY OTHER DAY)
     Route: 048
     Dates: start: 202006

REACTIONS (5)
  - Breast tenderness [Not Recovered/Not Resolved]
  - Feeling abnormal [Not Recovered/Not Resolved]
  - Malaise [Not Recovered/Not Resolved]
  - Headache [Not Recovered/Not Resolved]
  - Intentional product misuse [Not Recovered/Not Resolved]

NARRATIVE: CASE EVENT DATE: 202006
